FAERS Safety Report 23296361 (Version 2)
Quarter: 2023Q4

REPORT INFORMATION
  Report Type: Report from Study
  Country: US (occurrence: US)
  Receive Date: 20231214
  Receipt Date: 20231214
  Transmission Date: 20240109
  Serious: Yes (Death, Hospitalization, Other)
  Sender: FDA-Public Use
  Company Number: US-VERTEX PHARMACEUTICALS-2023-014478

PATIENT
  Age: 21 Year
  Sex: Female

DRUGS (2)
  1. TRIKAFTA [Suspect]
     Active Substance: ELEXACAFTOR\IVACAFTOR\TEZACAFTOR
     Indication: Cystic fibrosis
     Dosage: 2 ORANGE TABS IN AM, 1 BLUE TAB IN PM
     Route: 048
     Dates: start: 20200730
  2. TRIKAFTA [Suspect]
     Active Substance: ELEXACAFTOR\IVACAFTOR\TEZACAFTOR
     Dosage: REDUCED - 1 ORANGE PILL IN AM, NO PM PILL
     Route: 048
     Dates: start: 20210926, end: 202304

REACTIONS (9)
  - Non-alcoholic steatohepatitis [Unknown]
  - Non-alcoholic fatty liver [Fatal]
  - Cholecystitis chronic [Unknown]
  - Liver disorder [Unknown]
  - Treatment noncompliance [Unknown]
  - Prothrombin level increased [Unknown]
  - International normalised ratio increased [Unknown]
  - Enteritis [Unknown]
  - Colitis [Unknown]

NARRATIVE: CASE EVENT DATE: 20221214
